FAERS Safety Report 5239747-6 (Version None)
Quarter: 2007Q1

REPORT INFORMATION
  Report Type: 
  Country: None (occurrence: None)
  Receive Date: 20070214
  Receipt Date: 20070214
  Transmission Date: 20070707
  Serious: Yes (Other)
  Sender: FDA-Public Use
  Company Number: None

PATIENT
  Age: 44 Year
  Sex: Female
  Weight: 91.173 kg

DRUGS (1)
  1. ONXOL 300 MG IVAX [Suspect]
     Indication: LUNG NEOPLASM MALIGNANT
     Dosage: 400MG MONTHLY IV
     Route: 042
     Dates: start: 20070122, end: 20070212

REACTIONS (4)
  - CHEST PAIN [None]
  - DYSPNOEA [None]
  - ERYTHEMA [None]
  - FLUSHING [None]
